FAERS Safety Report 6316999-2 (Version None)
Quarter: 2009Q3

REPORT INFORMATION
  Report Type: 
  Country: None (occurrence: None)
  Receive Date: 20090820
  Receipt Date: 20090812
  Transmission Date: 20100115
  Serious: Yes (Other)
  Sender: FDA-Public Use
  Company Number: DE-WYE-G04233009

PATIENT
  Sex: Male

DRUGS (3)
  1. TREVILOR RETARD [Suspect]
     Route: 064
     Dates: start: 20081001, end: 20081012
  2. TREVILOR RETARD [Suspect]
     Route: 064
     Dates: start: 20081125, end: 20090507
  3. TREVILOR RETARD [Suspect]
     Route: 064
     Dates: start: 20090408, end: 20090101

REACTIONS (4)
  - CYANOSIS NEONATAL [None]
  - FOETAL HEART RATE DECELERATION [None]
  - NEONATAL RESPIRATORY FAILURE [None]
  - UMBILICAL CORD AROUND NECK [None]
